FAERS Safety Report 9731375 (Version 1)
Quarter: 2013Q4

REPORT INFORMATION
  Report Type: Spontaneous
  Country: US (occurrence: US)
  Receive Date: 20131203
  Receipt Date: 20131203
  Transmission Date: 20140711
  Serious: Yes (Hospitalization)
  Sender: FDA-Public Use
  Company Number: US-NOVEN-13US007813

PATIENT
  Age: 60 Year
  Sex: Male

DRUGS (8)
  1. FENTANYL [Suspect]
     Indication: PAIN
     Dosage: 50 UG/HR Q 72 HOURS
     Route: 062
     Dates: start: 201306
  2. NICODERM [Concomitant]
     Indication: SMOKING CESSATION THERAPY
     Dosage: UNK
     Route: 062
  3. CLONAZEPAM [Concomitant]
     Indication: PRODUCT USED FOR UNKNOWN INDICATION
     Dosage: UNK
  4. BUPROPION [Concomitant]
     Indication: SMOKING CESSATION THERAPY
     Dosage: UNK
  5. OXYCODONE [Concomitant]
     Indication: BREAKTHROUGH PAIN
     Dosage: UNK
     Route: 048
  6. AMLODIPINE [Concomitant]
     Indication: BLOOD PRESSURE
     Route: 048
  7. FOSINOPRIL [Concomitant]
     Indication: BLOOD PRESSURE
     Route: 048
  8. HYDROCHLOORTHIAZIDE [Concomitant]
     Dosage: 25 MG, UNK
     Route: 048

REACTIONS (3)
  - Dyspnoea [Not Recovered/Not Resolved]
  - Chest pain [Recovered/Resolved]
  - Nervousness [Not Recovered/Not Resolved]
